FAERS Safety Report 19879398 (Version 1)
Quarter: 2021Q3

REPORT INFORMATION
  Report Type: Spontaneous
  Country: US (occurrence: US)
  Receive Date: 20210924
  Receipt Date: 20210924
  Transmission Date: 20211014
  Serious: Yes (Other)
  Sender: FDA-Public Use
  Company Number: US-MYLANLABS-2021M1065233

PATIENT
  Age: 61 Year
  Sex: Female

DRUGS (8)
  1. DANAZOL. [Suspect]
     Active Substance: DANAZOL
     Indication: AUTOIMMUNE DISORDER
  2. RITUXIMAB. [Suspect]
     Active Substance: RITUXIMAB
     Indication: AUTOIMMUNE DISORDER
  3. CICLOSPORINE [Suspect]
     Active Substance: CYCLOSPORINE
     Indication: AUTOIMMUNE DISORDER
  4. CICLOSPORINE [Suspect]
     Active Substance: CYCLOSPORINE
     Indication: MYELOFIBROSIS
     Dosage: UNK
     Route: 065
  5. PREDNISONE. [Suspect]
     Active Substance: PREDNISONE
     Indication: AUTOIMMUNE DISORDER
  6. DANAZOL. [Suspect]
     Active Substance: DANAZOL
     Indication: MYELOFIBROSIS
     Dosage: UNK
     Route: 065
  7. RITUXIMAB. [Suspect]
     Active Substance: RITUXIMAB
     Indication: MYELOFIBROSIS
     Dosage: UNK
     Route: 065
  8. PREDNISONE. [Suspect]
     Active Substance: PREDNISONE
     Indication: MYELOFIBROSIS
     Dosage: 1 MILLIGRAM/KILOGRAM, QD
     Route: 065

REACTIONS (1)
  - Drug ineffective [Unknown]
